FAERS Safety Report 7282772-4 (Version None)
Quarter: 2011Q1

REPORT INFORMATION
  Report Type: 
  Country: None (occurrence: None)
  Receive Date: 20110209
  Receipt Date: 20101220
  Transmission Date: 20110831
  Serious: Yes (Other)
  Sender: FDA-Public Use
  Company Number: US-BAYER-201032538NA

PATIENT
  Sex: Female
  Weight: 104.31 kg

DRUGS (12)
  1. UNCODEABLE ^UNCLASSIFIABLE^ [Concomitant]
     Dosage: UNK
     Dates: start: 20071018, end: 20071021
  2. YAZ [Suspect]
     Indication: CONTRACEPTION
     Dosage: UNK
     Route: 048
     Dates: start: 20070801, end: 20080601
  3. EXCEDRIN (MIGRAINE) [Concomitant]
     Dosage: UNK
     Dates: start: 20070101
  4. NOREL [Concomitant]
  5. AZITHROMYCIN [Concomitant]
     Dosage: UNK
     Dates: start: 20080226, end: 20080302
  6. PREDNISONE [Concomitant]
     Dosage: 20 MG, UNK
     Dates: start: 20071010, end: 20071017
  7. CETIRIZINE HCL [Concomitant]
  8. FLUTICASONE PROPIONATE [Concomitant]
  9. YASMIN [Suspect]
     Indication: CONTRACEPTION
     Dosage: UNK
     Route: 048
     Dates: start: 20070806, end: 20080601
  10. OCELLA [Suspect]
     Indication: CONTRACEPTION
     Dosage: UNK
     Route: 048
     Dates: start: 20080628, end: 20080726
  11. METOCLOPRAMIDE [Concomitant]
     Dosage: UNK
     Dates: start: 20071018, end: 20071020
  12. PROMETRIUM [Concomitant]
     Dosage: 200 MG, UNK
     Route: 048
     Dates: start: 20070801

REACTIONS (7)
  - GALLBLADDER CHOLESTEROLOSIS [None]
  - BILIARY DYSKINESIA [None]
  - ABDOMINAL PAIN UPPER [None]
  - CHOLECYSTITIS CHRONIC [None]
  - NAUSEA [None]
  - MELAENA [None]
  - DIARRHOEA [None]
